FAERS Safety Report 10755404 (Version 1)
Quarter: 2015Q1

REPORT INFORMATION
  Report Type: Spontaneous
  Country: US (occurrence: US)
  Receive Date: 20150202
  Receipt Date: 20150202
  Transmission Date: 20150721
  Serious: Yes (Hospitalization, Other)
  Sender: FDA-Public Use
  Company Number: US-TEVA-537314USA

PATIENT
  Age: 51 Year
  Sex: Male

DRUGS (4)
  1. PREDNISONE. [Suspect]
     Active Substance: PREDNISONE
     Indication: IMMUNOSUPPRESSANT DRUG THERAPY
     Route: 065
  2. MYCOPHENOLATE MOFETIL. [Suspect]
     Active Substance: MYCOPHENOLATE MOFETIL
     Indication: IMMUNOSUPPRESSANT DRUG THERAPY
     Dosage: DOSE AND FREQUENCY NOT PROVIDED
     Route: 065
  3. PROGRAFT [Suspect]
     Active Substance: TACROLIMUS
     Indication: IMMUNOSUPPRESSANT DRUG THERAPY
     Route: 065
  4. XELODA [Suspect]
     Active Substance: CAPECITABINE
     Indication: PROPHYLAXIS
     Dosage: AVG DOSE 18.4MG/KG OVER 5MO PERIOD, DIVIDED INTO 2 DAILY DOSES GIVEN ON D1-14 OF 21D CYCLE
     Route: 048

REACTIONS (7)
  - Cardiomyopathy [Recovering/Resolving]
  - Tumour lysis syndrome [Recovering/Resolving]
  - Skin cancer [Recovering/Resolving]
  - Diarrhoea [Recovering/Resolving]
  - Palmar-plantar erythrodysaesthesia syndrome [Recovering/Resolving]
  - Gout [Recovering/Resolving]
  - Blood creatinine increased [Recovering/Resolving]
